FAERS Safety Report 9237592 (Version 1)
Quarter: 2013Q2

REPORT INFORMATION
  Report Type: Spontaneous
  Country: AU (occurrence: AU)
  Receive Date: 20130418
  Receipt Date: 20130418
  Transmission Date: 20140414
  Serious: Yes (Disabling)
  Sender: FDA-Public Use
  Company Number: AU-MERCK-1304AUS007336

PATIENT
  Age: 47 Year
  Sex: Female

DRUGS (3)
  1. SINGULAIR [Suspect]
     Dosage: 10 MG, QD
     Route: 048
     Dates: start: 20130131, end: 20130220
  2. LOVAN [Suspect]
     Dosage: 40 MG, QD
     Route: 048
  3. PANAFCORTELONE [Suspect]
     Dosage: 50 MG, QD
     Route: 048
     Dates: start: 20130131

REACTIONS (3)
  - Mania [Unknown]
  - Insomnia [Unknown]
  - Anxiety [Unknown]
